FAERS Safety Report 7145249-2 (Version None)
Quarter: 2010Q4

REPORT INFORMATION
  Report Type: 
  Country: None (occurrence: None)
  Receive Date: 20101124
  Receipt Date: 20101112
  Transmission Date: 20110411
  Serious: Yes (Hospitalization)
  Sender: FDA-Public Use
  Company Number: APP201001026

PATIENT
  Age: 68 Year
  Sex: Female
  Weight: 110 kg

DRUGS (14)
  1. VANCOMYCIN HYDROCHLORIDE [Suspect]
     Indication: PRODUCT USED FOR UNKNOWN INDICATION
     Dates: start: 20100923, end: 20101006
  2. VANCOMYCIN HYDROCHLORIDE [Suspect]
  3. ACETAMINOPHEN [Suspect]
     Indication: PAIN
     Dates: start: 20100915, end: 20101014
  4. ACETAMINOPHEN [Suspect]
  5. ACETAMINOPHEN [Suspect]
  6. ACETAMINOPHEN [Suspect]
  7. ACETAMINOPHEN [Suspect]
  8. ACETAMINOPHEN [Suspect]
  9. PIPERACILLIN [Suspect]
     Indication: INFECTED SKIN ULCER
     Dosage: 3 UNIT DOSE
     Dates: start: 20100915, end: 20101006
  10. TAZOBACTAM [Suspect]
     Indication: INFECTED SKIN ULCER
     Dosage: 3 UNITS DOSES
     Dates: start: 20100915, end: 20101006
  11. FLAVANOIDS, EXTRACTED FROM RUTACEAE [Suspect]
     Indication: VENOUS INSUFFICIENCY
     Dosage: 1500 MG ORALLY
     Route: 048
     Dates: start: 20100916, end: 20101010
  12. TRAMADOL HCL [Suspect]
     Indication: PAIN
     Dosage: 300 MG
     Dates: start: 20100916, end: 20101006
  13. METOCLOPRAMIDE [Suspect]
     Indication: PROPHYLAXIS OF NAUSEA AND VOMITING
     Dosage: 30 MG
     Dates: start: 20100916, end: 20101006
  14. ALPROSTADIL [Suspect]
     Indication: PRODUCT USED FOR UNKNOWN INDICATION
     Dosage: 0.2 MG,
     Dates: start: 20100915, end: 20101013

REACTIONS (7)
  - HAEMODIALYSIS [None]
  - HAEMODYNAMIC INSTABILITY [None]
  - RASH MORBILLIFORM [None]
  - RENAL FAILURE ACUTE [None]
  - RENAL TUBULAR NECROSIS [None]
  - SEPTIC SHOCK [None]
  - SKIN ULCER HAEMORRHAGE [None]
